FAERS Safety Report 22960909 (Version 3)
Quarter: 2024Q2

REPORT INFORMATION
  Report Type: Spontaneous
  Country: US (occurrence: US)
  Receive Date: 20230920
  Receipt Date: 20240627
  Transmission Date: 20240715
  Serious: Yes (Death, Other)
  Sender: FDA-Public Use
  Company Number: US-009507513-2309USA005091

PATIENT
  Age: 50 Year
  Sex: Female

DRUGS (6)
  1. KEYTRUDA [Suspect]
     Active Substance: PEMBROLIZUMAB
     Indication: Neuroendocrine tumour of the lung
     Dosage: UNK
     Route: 042
     Dates: start: 202201
  2. KEYTRUDA [Suspect]
     Active Substance: PEMBROLIZUMAB
     Indication: Brain neoplasm malignant
  3. KEYTRUDA [Suspect]
     Active Substance: PEMBROLIZUMAB
     Indication: Adenocarcinoma
  4. PEMETREXED [Suspect]
     Active Substance: PEMETREXED
     Indication: Neuroendocrine tumour of the lung
     Dosage: UNK
     Dates: start: 202201
  5. PEMETREXED [Suspect]
     Active Substance: PEMETREXED
     Indication: Brain neoplasm malignant
  6. PEMETREXED [Suspect]
     Active Substance: PEMETREXED
     Indication: Adenocarcinoma

REACTIONS (3)
  - Malignant neoplasm progression [Fatal]
  - Eye injury [Unknown]
  - Corneal scar [Unknown]

NARRATIVE: CASE EVENT DATE: 20220101
